FAERS Safety Report 7333190-1 (Version None)
Quarter: 2011Q1

REPORT INFORMATION
  Report Type: 
  Country: None (occurrence: None)
  Receive Date: 20110224
  Receipt Date: 20110214
  Transmission Date: 20110831
  Serious: Yes (Other)
  Sender: FDA-Public Use
  Company Number: 2011SP007106

PATIENT
  Age: 34 Year
  Sex: Female

DRUGS (1)
  1. PUREGON (FOLLITROPIN BETA (01348901) [Suspect]
     Indication: PRODUCT USED FOR UNKNOWN INDICATION

REACTIONS (6)
  - FLUSHING [None]
  - CYANOSIS [None]
  - SKIN ULCER [None]
  - SKIN REACTION [None]
  - SKIN DISCOLOURATION [None]
  - PERIPHERAL VASCULAR DISORDER [None]
